FAERS Safety Report 7461839-1 (Version None)
Quarter: 2011Q2

REPORT INFORMATION
  Report Type: 
  Country: None (occurrence: None)
  Receive Date: 20110506
  Receipt Date: 20110502
  Transmission Date: 20111010
  Serious: No
  Sender: FDA-Public Use
  Company Number: US-PFIZER INC-2011094655

PATIENT

DRUGS (1)
  1. RELISTOR [Suspect]
     Dosage: UNK
     Dates: start: 20110428

REACTIONS (5)
  - DRUG INTERACTION [None]
  - VOMITING [None]
  - RHINORRHOEA [None]
  - NAUSEA [None]
  - PAIN IN EXTREMITY [None]
